FAERS Safety Report 9927433 (Version 3)
Quarter: 2014Q2

REPORT INFORMATION
  Report Type: Spontaneous
  Country: DE (occurrence: DE)
  Receive Date: 20140227
  Receipt Date: 20140421
  Transmission Date: 20141212
  Serious: Yes (Life-Threatening, Hospitalization, Other)
  Sender: FDA-Public Use
  Company Number: DE-ROCHE-1356532

PATIENT
  Age: 74 Year
  Sex: Female
  Weight: 65 kg

DRUGS (7)
  1. MABTHERA [Suspect]
     Indication: GRANULOMATOSIS WITH POLYANGIITIS
     Route: 042
     Dates: start: 20120524
  2. MABTHERA [Suspect]
     Route: 042
     Dates: start: 20120608, end: 201303
  3. PREDNISOLON [Concomitant]
     Indication: MICROSCOPIC POLYANGIITIS
     Route: 048
     Dates: start: 201104
  4. METHOTREXAT [Concomitant]
     Indication: MICROSCOPIC POLYANGIITIS
     Route: 058
     Dates: start: 201209, end: 201303
  5. RAMIPRIL [Concomitant]
     Route: 065
  6. L-THYROXIN [Concomitant]
     Route: 065
  7. PANTOZOL (GERMANY) [Concomitant]
     Route: 065

REACTIONS (9)
  - Hepatitis E [Recovered/Resolved]
  - Hepatic failure [Unknown]
  - Pneumonia [Recovering/Resolving]
  - Generalised oedema [Recovered/Resolved]
  - Oedema [Recovered/Resolved]
  - Hypokalaemia [Recovered/Resolved]
  - Diplopia [Unknown]
  - Iron deficiency [Recovered/Resolved]
  - Vitamin D deficiency [Recovered/Resolved]
